FAERS Safety Report 6714060-6 (Version None)
Quarter: 2010Q2

REPORT INFORMATION
  Report Type: 
  Country: None (occurrence: None)
  Receive Date: 20100503
  Receipt Date: 20100421
  Transmission Date: 20101027
  Serious: Yes (Other)
  Sender: FDA-Public Use
  Company Number: 1000013161

PATIENT
  Sex: Female
  Weight: 44 kg

DRUGS (1)
  1. ESCITALOPRAM [Suspect]
     Indication: DEPRESSION
     Dosage: 10 MG (10 MG, 1 IN 1 D)
     Dates: start: 20080117

REACTIONS (1)
  - INTRAOCULAR PRESSURE INCREASED [None]
